FAERS Safety Report 7267963-0 (Version None)
Quarter: 2011Q1

REPORT INFORMATION
  Report Type: 
  Country: None (occurrence: None)
  Receive Date: 20110201
  Receipt Date: 20110121
  Transmission Date: 20110831
  Serious: Yes (Other)
  Sender: FDA-Public Use
  Company Number: CA-PFIZER INC-2010174731

PATIENT
  Age: 58 Year
  Sex: Female
  Weight: 108 kg

DRUGS (1)
  1. TECTA [Suspect]
     Indication: GASTROOESOPHAGEAL REFLUX DISEASE
     Dosage: 40 MG, 1X/DAY
     Route: 048
     Dates: start: 20100717, end: 20100718

REACTIONS (6)
  - VITH NERVE PARALYSIS [None]
  - HYPOAESTHESIA [None]
  - ALLODYNIA [None]
  - DIZZINESS [None]
  - GAIT DISTURBANCE [None]
  - PARAESTHESIA [None]
